FAERS Safety Report 23345619 (Version 1)
Quarter: 2023Q4

REPORT INFORMATION
  Report Type: Report from Study
  Country: FR (occurrence: FR)
  Receive Date: 20231228
  Receipt Date: 20231228
  Transmission Date: 20240110
  Serious: Yes (Hospitalization)
  Sender: FDA-Public Use
  Company Number: FR-AstraZeneca-2023A172840

PATIENT
  Age: 13 Week
  Sex: Male
  Weight: 5 kg

DRUGS (1)
  1. SYNAGIS [Suspect]
     Active Substance: PALIVIZUMAB
     Indication: Product used for unknown indication
     Route: 030

REACTIONS (2)
  - Bronchiolitis [Recovered/Resolved]
  - Metapneumovirus bronchiolitis [Recovered/Resolved]

NARRATIVE: CASE EVENT DATE: 20221117
